FAERS Safety Report 9315203 (Version 2)
Quarter: 2013Q2

REPORT INFORMATION
  Report Type: Spontaneous
  Country: IT (occurrence: IT)
  Receive Date: 20130529
  Receipt Date: 20130606
  Transmission Date: 20140414
  Serious: Yes (Hospitalization)
  Sender: FDA-Public Use
  Company Number: IT-TEVA-407409ISR

PATIENT
  Age: 99 Year
  Sex: Female

DRUGS (4)
  1. ZOLPIDEM [Suspect]
     Indication: DEPRESSION
     Dosage: 10 MILLIGRAM DAILY;
     Route: 048
     Dates: start: 20130219, end: 20130309
  2. LASIX [Interacting]
     Indication: HYPERTENSION
     Dosage: 125 MILLIGRAM DAILY;
     Route: 048
     Dates: start: 20130101, end: 20130309
  3. ALDACTONE [Concomitant]
  4. LANOXIN [Concomitant]
     Dosage: .125 MILLIGRAM DAILY;

REACTIONS (4)
  - Hypokalaemia [Recovered/Resolved]
  - Hyponatraemia [Recovered/Resolved]
  - Medication error [Unknown]
  - Drug interaction [Unknown]
